FAERS Safety Report 10844604 (Version 1)
Quarter: 2015Q1

REPORT INFORMATION
  Report Type: Report from Study
  Country: US (occurrence: US)
  Receive Date: 20150220
  Receipt Date: 20150220
  Transmission Date: 20150721
  Serious: No
  Sender: FDA-Public Use
  Company Number: US-ABBVIE-14P-163-1294754-00

PATIENT
  Age: 27 Year
  Sex: Female

DRUGS (1)
  1. HUMIRA [Suspect]
     Active Substance: ADALIMUMAB
     Indication: RHEUMATOID ARTHRITIS
     Route: 058
     Dates: start: 20140614

REACTIONS (6)
  - Fatigue [Unknown]
  - Mood swings [Unknown]
  - Menorrhagia [Unknown]
  - Bronchitis [Unknown]
  - Sluggishness [Unknown]
  - Aggression [Unknown]

NARRATIVE: CASE EVENT DATE: 201407
